FAERS Safety Report 8375754-2 (Version None)
Quarter: 2012Q1

REPORT INFORMATION
  Report Type: 
  Country: None (occurrence: None)
  Receive Date: 20120323
  Receipt Date: 20111205
  Transmission Date: 20120608
  Serious: Yes (Hospitalization, Other)
  Sender: FDA-Public Use
  Company Number: 163-21880-11111278

PATIENT
  Age: 61 Year
  Sex: Male
  Weight: 87.9978 kg

DRUGS (13)
  1. PHENERGAN HCL [Concomitant]
  2. VELCADE [Concomitant]
  3. REVLIMID [Suspect]
     Indication: MULTIPLE MYELOMA
     Dosage: 25 MG, QD X 21 DAY, PO, 10 MG, DAILY X 21 DAYS, PO
     Route: 048
     Dates: start: 20111013, end: 20111018
  4. REVLIMID [Suspect]
     Indication: MULTIPLE MYELOMA
     Dosage: 25 MG, QD X 21 DAY, PO, 10 MG, DAILY X 21 DAYS, PO
     Route: 048
     Dates: start: 20111207
  5. WARFARIN SODIUM [Concomitant]
  6. ALLOPURINOL [Concomitant]
  7. DEXAMETHASONE [Concomitant]
  8. LORTAB [Concomitant]
  9. ACYCLOVIR [Concomitant]
  10. NEXIUM [Concomitant]
  11. BACTRIM [Concomitant]
  12. MEGACE [Concomitant]
  13. COLACE (DOCUSATE SODIUM) [Suspect]
     Indication: PRODUCT USED FOR UNKNOWN INDICATION

REACTIONS (6)
  - SMALL INTESTINAL OBSTRUCTION [None]
  - CONFUSIONAL STATE [None]
  - SOMNOLENCE [None]
  - FATIGUE [None]
  - HALLUCINATION [None]
  - DISORIENTATION [None]
